FAERS Safety Report 5603308-7 (Version None)
Quarter: 2008Q1

REPORT INFORMATION
  Report Type: 
  Country: None (occurrence: None)
  Receive Date: 20080123
  Receipt Date: 20080111
  Transmission Date: 20080703
  Serious: Yes (Hospitalization)
  Sender: FDA-Public Use
  Company Number: 2008SP001077

PATIENT
  Sex: Male

DRUGS (2)
  1. TEMODAL [Suspect]
     Indication: BRAIN NEOPLASM
     Dosage: 150 MG;
     Dates: start: 20071002, end: 20071115
  2. DEXAMETHASONE TAB [Suspect]
     Indication: DRUG USE FOR UNKNOWN INDICATION

REACTIONS (6)
  - ANOREXIA [None]
  - BRAIN OEDEMA [None]
  - CONVULSION [None]
  - IMMOBILISATION PROLONGED [None]
  - NAUSEA [None]
  - PAIN [None]
